FAERS Safety Report 4756710-X (Version None)
Quarter: 2005Q3

REPORT INFORMATION
  Report Type: 
  Country: None (occurrence: None)
  Receive Date: 20050830
  Receipt Date: 20050822
  Transmission Date: 20060218
  Serious: Yes (Disabling)
  Sender: FDA-Public Use
  Company Number: GB-BRISTOL-MYERS SQUIBB COMPANY-13088687

PATIENT
  Age: 56 Year
  Sex: Female

DRUGS (3)
  1. PACLITAXEL [Suspect]
     Indication: BREAST CANCER
     Dates: start: 20041201
  2. ARIMIDEX [Concomitant]
  3. NEULASTA [Concomitant]

REACTIONS (11)
  - CANDIDIASIS [None]
  - CYSTITIS [None]
  - DEPRESSED MOOD [None]
  - DRY EYE [None]
  - DRY MOUTH [None]
  - MENOPAUSAL SYMPTOMS [None]
  - MOUTH ULCERATION [None]
  - NAIL DISORDER [None]
  - NEUROMYOPATHY [None]
  - NEUROPATHY PERIPHERAL [None]
  - PERIARTHRITIS [None]
